FAERS Safety Report 9647246 (Version 1)
Quarter: 2013Q4

REPORT INFORMATION
  Report Type: Spontaneous
  Country: US (occurrence: US)
  Receive Date: 20131027
  Receipt Date: 20131027
  Transmission Date: 20140711
  Serious: No
  Sender: FDA-Public Use
  Company Number: US-PURDUE-USA-2013-0106399

PATIENT
  Sex: Male

DRUGS (2)
  1. OXYCONTIN (NDA 22-272) [Suspect]
     Indication: CAUDA EQUINA SYNDROME
     Dosage: 40 MG, Q8H
     Route: 048
  2. OXYCONTIN (NDA 22-272) [Suspect]
     Indication: POST LAMINECTOMY SYNDROME

REACTIONS (1)
  - Drug effect decreased [Unknown]
